FAERS Safety Report 4404292-4 (Version None)
Quarter: 2004Q3

REPORT INFORMATION
  Report Type: 
  Country: None (occurrence: None)
  Receive Date: 20040721
  Receipt Date: 20040721
  Transmission Date: 20050211
  Serious: Yes (Hospitalization)
  Sender: FDA-Public Use
  Company Number: None

PATIENT
  Age: 62 Year
  Sex: Male
  Weight: 69.6 kg

DRUGS (16)
  1. COUMADIN [Suspect]
     Indication: CARDIAC FAILURE CONGESTIVE
  2. SIMVASTATIN [Concomitant]
  3. GATIFLOXACIN [Concomitant]
  4. GUAIFENESIN [Concomitant]
  5. LISINOPRIL [Concomitant]
  6. SPIRONOLACTONE [Concomitant]
  7. FUROSEMIDE [Concomitant]
  8. NITROGLYCERIN [Concomitant]
  9. RANITIDINE HYDROCHLORIDE [Concomitant]
  10. LANOXIN [Concomitant]
  11. ALBUTEROL/IPRATROP [Concomitant]
  12. DIBUCAINE [Concomitant]
  13. HEMORRHOIDAL RTL OINT [Concomitant]
  14. DIPHENHYDRAMINE [Concomitant]
  15. FUROSEMIDE [Concomitant]
  16. PHYTONADIONE [Concomitant]

REACTIONS (1)
  - INTERNATIONAL NORMALISED RATIO INCREASED [None]
